FAERS Safety Report 5033083-9 (Version None)
Quarter: 2006Q2

REPORT INFORMATION
  Report Type: 
  Country: None (occurrence: None)
  Receive Date: 20060622
  Receipt Date: 20060606
  Transmission Date: 20061013
  Serious: Yes (Other)
  Sender: FDA-Public Use
  Company Number: ES-BRISTOL-MYERS SQUIBB COMPANY-13404512

PATIENT
  Age: 21 Year
  Sex: Female

DRUGS (2)
  1. REYATAZ [Suspect]
     Indication: HIV INFECTION
  2. TRIZIVIR [Suspect]

REACTIONS (2)
  - BLOOD BILIRUBIN INCREASED [None]
  - HEPATOTOXICITY [None]
